FAERS Safety Report 6788697-2 (Version None)
Quarter: 2010Q2

REPORT INFORMATION
  Report Type: 
  Country: None (occurrence: None)
  Receive Date: 20100623
  Receipt Date: 20080609
  Transmission Date: 20101027
  Serious: Yes (Other)
  Sender: FDA-Public Use
  Company Number: US-PFIZER INC-2008034940

PATIENT
  Sex: Female

DRUGS (1)
  1. GEODON [Suspect]
     Indication: DIABETES MELLITUS

REACTIONS (1)
  - TARDIVE DYSKINESIA [None]
